FAERS Safety Report 8925124 (Version 1)
Quarter: 2012Q4

REPORT INFORMATION
  Report Type: Spontaneous
  Country: US (occurrence: None)
  Receive Date: 20121126
  Receipt Date: 20121126
  Transmission Date: 20130627
  Serious: Yes (Other)
  Sender: FDA-Public Use
  Company Number: None

PATIENT
  Age: 49 Year
  Sex: Female
  Weight: 70.31 kg

DRUGS (1)
  1. CENTRUM VITAMINS LIQUID [Suspect]
     Indication: VITAMIN SUPPLEMENTATION
     Dosage: Fifteen cc daily
     Dates: start: 20121027, end: 20121105

REACTIONS (1)
  - Flank pain [None]
